FAERS Safety Report 7291470-2 (Version None)
Quarter: 2011Q1

REPORT INFORMATION
  Report Type: 
  Country: None (occurrence: None)
  Receive Date: 20110214
  Receipt Date: 20110209
  Transmission Date: 20110831
  Serious: Yes (Other)
  Sender: FDA-Public Use
  Company Number: BE-ELI_LILLY_AND_COMPANY-BE201102000457

PATIENT
  Age: 20 Year
  Sex: Female

DRUGS (4)
  1. ZYPREXA [Suspect]
  2. ZYPADHERA [Suspect]
     Dosage: 300 MG, UNK
     Route: 030
     Dates: start: 20110114
  3. CANNABIS [Concomitant]
  4. TEMESTA [Concomitant]
     Dosage: 2.5 MG, UNK
     Dates: start: 20110203

REACTIONS (4)
  - EPILEPSY [None]
  - DRUG EXPOSURE DURING PREGNANCY [None]
  - NEUTROPHILIA [None]
  - HYPONATRAEMIA [None]
